FAERS Safety Report 16937324 (Version 3)
Quarter: 2020Q3

REPORT INFORMATION
  Report Type: Spontaneous
  Country: US (occurrence: US)
  Receive Date: 20191018
  Receipt Date: 20200701
  Transmission Date: 20201102
  Serious: Yes (Other)
  Sender: FDA-Public Use
  Company Number: US-JNJFOC-20191018078

PATIENT
  Sex: Male
  Weight: 131.66 kg

DRUGS (4)
  1. REMICADE [Suspect]
     Active Substance: INFLIXIMAB
     Indication: COLITIS ULCERATIVE
     Route: 042
     Dates: end: 20191002
  2. XANAX [Concomitant]
     Active Substance: ALPRAZOLAM
  3. LOSARTAN. [Concomitant]
     Active Substance: LOSARTAN
  4. CRESTOR [Concomitant]
     Active Substance: ROSUVASTATIN CALCIUM

REACTIONS (8)
  - Colitis ulcerative [Unknown]
  - Urinary tract infection [Unknown]
  - Weight decreased [Unknown]
  - Immobile [Unknown]
  - Blood cholesterol decreased [Unknown]
  - Gait disturbance [Unknown]
  - Drug ineffective [Unknown]
  - Intervertebral disc disorder [Unknown]

NARRATIVE: CASE EVENT DATE: 2018
